FAERS Safety Report 8071960-5 (Version None)
Quarter: 2012Q1

REPORT INFORMATION
  Report Type: 
  Country: None (occurrence: None)
  Receive Date: 20120126
  Receipt Date: 20120117
  Transmission Date: 20120608
  Serious: Yes (Hospitalization)
  Sender: FDA-Public Use
  Company Number: US-BAYER-2011-042447

PATIENT
  Age: 39 Year
  Sex: Female
  Weight: 59.1 kg

DRUGS (20)
  1. LIBRIUM [Concomitant]
     Route: 048
  2. YASMIN [Suspect]
     Indication: PREMENSTRUAL SYNDROME
     Dosage: UNK
     Dates: start: 20080101, end: 20090101
  3. YASMIN [Suspect]
     Indication: CONTRACEPTION
  4. TENORMIN [Concomitant]
     Dosage: 50 MG, QD
     Route: 048
  5. HYDROXYZINE HCL [Concomitant]
     Dosage: 25 MG, TID
     Route: 048
  6. SUBOXONE [Concomitant]
     Dosage: 2 MG, UNK
     Route: 048
  7. YAZ [Suspect]
     Indication: ACNE
  8. YAZ [Suspect]
     Indication: PREMENSTRUAL SYNDROME
  9. ELAVIL [Concomitant]
     Dosage: 75 MG, QD
     Route: 048
  10. TRAZODONE HCL [Concomitant]
     Dosage: 50 MG, QD
     Route: 048
  11. DROSPIRENONE AND ETHINYL ESTRADIOL [Suspect]
     Indication: CONTRACEPTION
     Dosage: UNK
     Dates: start: 20080101, end: 20090101
  12. CYMBALTA [Concomitant]
  13. SUBOXONE [Concomitant]
     Dosage: 8 MG, UNK
  14. YASMIN [Suspect]
     Indication: ACNE
  15. DROSPIRENONE AND ETHINYL ESTRADIOL [Suspect]
     Indication: ACNE
  16. DROSPIRENONE AND ETHINYL ESTRADIOL [Suspect]
     Indication: PREMENSTRUAL SYNDROME
  17. CELEXA [Concomitant]
     Dosage: 20 MG, QD
     Route: 048
  18. YAZ [Suspect]
     Indication: CONTRACEPTION
     Dosage: UNK
     Dates: start: 20080101, end: 20090101
  19. OTHER ANALGESICS AND ANTIPYRETICS [Concomitant]
     Route: 048
  20. XANAX [Concomitant]

REACTIONS (4)
  - PULMONARY EMBOLISM [None]
  - MENTAL DISORDER [None]
  - PAIN [None]
  - DEEP VEIN THROMBOSIS [None]
